FAERS Safety Report 9963586 (Version 2)
Quarter: 2014Q1

REPORT INFORMATION
  Report Type: Report from Study
  Country: IT (occurrence: IT)
  Receive Date: 20140305
  Receipt Date: 20140305
  Transmission Date: 20141002
  Serious: Yes (Other)
  Sender: FDA-Public Use
  Company Number: PHHO2011IT10076

PATIENT
  Sex: 0

DRUGS (6)
  1. EVEROLIMUS [Suspect]
     Indication: HEPATOCELLULAR CARCINOMA
     Dosage: 7.5 MG, QD
     Route: 048
     Dates: start: 20110525, end: 20110725
  2. COUMADIN [Suspect]
     Indication: ATRIAL FIBRILLATION
     Dosage: 2.5 MG, DAILY
     Dates: start: 2007, end: 20110609
  3. TAPAZOLE [Concomitant]
     Indication: HYPERTHYROIDISM
  4. LASIX [Concomitant]
     Indication: ASCITES
  5. KANRENOL [Concomitant]
     Indication: ASCITES
  6. MEGACE [Concomitant]
     Indication: EASTERN COOPERATIVE ONCOLOGY GROUP PERFORMANCE STATUS

REACTIONS (2)
  - Epistaxis [Recovered/Resolved]
  - International normalised ratio increased [Not Recovered/Not Resolved]
